FAERS Safety Report 8554803-2 (Version None)
Quarter: 2012Q3

REPORT INFORMATION
  Report Type: 
  Country: None (occurrence: None)
  Receive Date: 20120731
  Receipt Date: 20120723
  Transmission Date: 20120928
  Serious: Yes (Death, Other)
  Sender: FDA-Public Use
  Company Number: US-ACTELION-A-US2012-69177

PATIENT
  Age: 62 Year
  Sex: Male

DRUGS (1)
  1. TRACLEER [Suspect]
     Indication: PULMONARY ARTERIAL HYPERTENSION
     Dosage: UNK
     Route: 048

REACTIONS (3)
  - CARDIAC FAILURE [None]
  - DEATH [None]
  - RENAL IMPAIRMENT [None]
